FAERS Safety Report 11467585 (Version 1)
Quarter: 2015Q3

REPORT INFORMATION
  Report Type: Spontaneous
  Country: GB (occurrence: GB)
  Receive Date: 20150908
  Receipt Date: 20150908
  Transmission Date: 20151125
  Serious: Yes (Other)
  Sender: FDA-Public Use
  Company Number: PHFR2015GB006490

PATIENT
  Sex: Male

DRUGS (2)
  1. CLOZARIL [Suspect]
     Active Substance: CLOZAPINE
     Indication: SCHIZOPHRENIA
     Dosage: UNK
     Route: 048
     Dates: start: 20150818
  2. CLOZARIL [Suspect]
     Active Substance: CLOZAPINE
     Dosage: 150 MG, BID
     Route: 048

REACTIONS (1)
  - Autoimmune thyroiditis [Unknown]
